FAERS Safety Report 12283275 (Version 1)
Quarter: 2016Q2

REPORT INFORMATION
  Report Type: Report from Study
  Country: US (occurrence: US)
  Receive Date: 20160419
  Receipt Date: 20160419
  Transmission Date: 20160815
  Serious: No
  Sender: FDA-Public Use
  Company Number: US-ABBVIE-15P-163-1498116-00

PATIENT
  Age: 53 Year
  Sex: Female

DRUGS (1)
  1. LUPRON DEPOT-PED [Suspect]
     Active Substance: LEUPROLIDE ACETATE
     Indication: DYSMENORRHOEA
     Route: 030
     Dates: start: 20150626

REACTIONS (6)
  - Insomnia [Unknown]
  - Menstruation irregular [Unknown]
  - Hot flush [Unknown]
  - Arthralgia [Unknown]
  - Weight increased [Unknown]
  - Abdominal distension [Unknown]
